FAERS Safety Report 13761883 (Version 1)
Quarter: 2017Q3

REPORT INFORMATION
  Report Type: Report from Study
  Country: None (occurrence: US)
  Receive Date: 20170718
  Receipt Date: 20170718
  Transmission Date: 20171127
  Serious: Yes (Other)
  Sender: FDA-Public Use
  Company Number: US-ABBVIE-17K-163-2038681-00

PATIENT
  Sex: Female

DRUGS (1)
  1. HUMIRA [Suspect]
     Active Substance: ADALIMUMAB
     Indication: CROHN^S DISEASE
     Route: 058
     Dates: start: 2014, end: 201701

REACTIONS (8)
  - Injection site urticaria [Unknown]
  - Lacrimation increased [Recovering/Resolving]
  - Cataract operation complication [Recovering/Resolving]
  - Cataract [Recovering/Resolving]
  - Acquired corneal dystrophy [Recovering/Resolving]
  - Fear of injection [Unknown]
  - Injection site pain [Unknown]
  - Impaired healing [Recovering/Resolving]

NARRATIVE: CASE EVENT DATE: 2017
